FAERS Safety Report 4718267-9 (Version None)
Quarter: 2005Q3

REPORT INFORMATION
  Report Type: 
  Country: None (occurrence: None)
  Receive Date: 20050714
  Receipt Date: 20041117
  Transmission Date: 20060218
  Serious: Yes (Other)
  Sender: FDA-Public Use
  Company Number: HQWYE491417NOV04

PATIENT
  Age: 77 Year
  Sex: Female
  Weight: 82.17 kg

DRUGS (8)
  1. ADVIL [Suspect]
     Dosage: SEE IMAGE
     Route: 048
     Dates: start: 20041023, end: 20041026
  2. ALEVE [Suspect]
     Indication: ARTHRITIS
     Dosage: 1-2 TABS EVERY 6 HOURS, ORAL
     Route: 048
     Dates: end: 20041023
  3. BEXTRA [Suspect]
     Dosage: INTERMITTANTLY
     Dates: start: 20031201, end: 20041001
  4. SYNTHROID [Concomitant]
  5. .... [Concomitant]
  6. BUSPAR [Concomitant]
  7. ADVAIR (FLUTICASONE PROPIONATE/SALMETEROL XINAFOATE) [Concomitant]
  8. PREPARATAION H MEDICATED WIPES (WITCH HAZEL) [Concomitant]

REACTIONS (1)
  - HAEMATOCHEZIA [None]
